FAERS Safety Report 16415794 (Version 1)
Quarter: 2019Q2

REPORT INFORMATION
  Report Type: Spontaneous
  Country: US (occurrence: US)
  Receive Date: 20190611
  Receipt Date: 20190611
  Transmission Date: 20190711
  Serious: Yes (Other)
  Sender: FDA-Public Use
  Company Number: US-JNJFOC-20190605980

PATIENT
  Age: 62 Year
  Sex: Female
  Weight: 72.58 kg

DRUGS (5)
  1. XARELTO [Suspect]
     Active Substance: RIVAROXABAN
     Indication: THROMBOSIS
     Dosage: NDC#: 100000798203, SERIAL #: 1386589
     Route: 048
     Dates: start: 20181120, end: 201904
  2. XARELTO [Suspect]
     Active Substance: RIVAROXABAN
     Indication: THROMBOSIS
     Dosage: NDC#: 100000798203 SERIAL # 1386589
     Route: 048
     Dates: start: 201904, end: 20190527
  3. MAGNESIUM [Concomitant]
     Active Substance: MAGNESIUM
     Indication: CONSTIPATION
     Route: 048
  4. VITAMIN D3 [Concomitant]
     Active Substance: CHOLECALCIFEROL
     Indication: PROPHYLAXIS
     Route: 048
  5. XARELTO [Suspect]
     Active Substance: RIVAROXABAN
     Indication: THROMBOSIS
     Dosage: NDC #: 100000798203, SERIAL #:1386589
     Route: 048
     Dates: start: 20181109, end: 20181119

REACTIONS (6)
  - Pruritus [Recovering/Resolving]
  - Incorrect dose administered [Unknown]
  - Off label use [Unknown]
  - Eye irritation [Recovered/Resolved]
  - Neuropathy peripheral [Recovering/Resolving]
  - Dizziness [Recovered/Resolved]

NARRATIVE: CASE EVENT DATE: 201811
